FAERS Safety Report 7985029-9 (Version None)
Quarter: 2011Q4

REPORT INFORMATION
  Report Type: 
  Country: None (occurrence: None)
  Receive Date: 20111213
  Receipt Date: 20111206
  Transmission Date: 20120403
  Serious: Yes (Other)
  Sender: FDA-Public Use
  Company Number: 2011SP050022

PATIENT
  Age: 90 Year
  Sex: Female
  Weight: 70 kg

DRUGS (1)
  1. DESLORATADINE [Suspect]
     Indication: EYE PRURITUS
     Dosage: 1 DF;QD
     Dates: start: 20110901, end: 20111001

REACTIONS (1)
  - DYSURIA [None]
